FAERS Safety Report 5223087-5 (Version None)
Quarter: 2007Q1

REPORT INFORMATION
  Report Type: 
  Country: None (occurrence: None)
  Receive Date: 20070122
  Receipt Date: 20070105
  Transmission Date: 20070707
  Serious: Yes (Life-Threatening, Hospitalization)
  Sender: FDA-Public Use
  Company Number: 151699ISR

PATIENT
  Age: 71 Year
  Sex: Male

DRUGS (1)
  1. METRONIDAZOLE [Suspect]
     Indication: CLOSTRIDIAL INFECTION
     Dosage: (400 MG) ORAL
     Route: 048
     Dates: start: 20060920, end: 20060925

REACTIONS (2)
  - ANAEMIA [None]
  - NEUTROPENIA [None]
